FAERS Safety Report 7744484-X (Version None)
Quarter: 2011Q3

REPORT INFORMATION
  Report Type: 
  Country: None (occurrence: None)
  Receive Date: 20110826
  Receipt Date: 20110819
  Transmission Date: 20111222
  Serious: Yes (Hospitalization)
  Sender: FDA-Public Use
  Company Number: 2011SP039140

PATIENT
  Age: 20 Year
  Sex: Female

DRUGS (3)
  1. NEXPLANON [Suspect]
     Indication: PRODUCT USED FOR UNKNOWN INDICATION
     Dosage: 1 DF;SC
     Route: 058
     Dates: start: 20110228
  2. NEXPLANON [Suspect]
     Indication: PRODUCT USED FOR UNKNOWN INDICATION
     Dosage: 1 DF;SC
     Route: 058
     Dates: end: 20110201
  3. VENTOLIN [Concomitant]

REACTIONS (6)
  - HOT FLUSH [None]
  - ASTHENIA [None]
  - HEADACHE [None]
  - DYSPNOEA [None]
  - PYREXIA [None]
  - PRODUCT SUBSTITUTION ISSUE [None]
